FAERS Safety Report 8880580 (Version 1)
Quarter: 2012Q4

REPORT INFORMATION
  Report Type: Report from Study
  Country: BR (occurrence: BR)
  Receive Date: 20121031
  Receipt Date: 20121031
  Transmission Date: 20130627
  Serious: Yes (Other)
  Sender: FDA-Public Use
  Company Number: BR-ROCHE-1150776

PATIENT
  Sex: Male
  Weight: 71 kg

DRUGS (4)
  1. CAPECITABINE [Suspect]
     Indication: COLORECTAL CANCER
     Route: 065
     Dates: start: 20110221, end: 20110830
  2. BEVACIZUMAB [Suspect]
     Indication: COLORECTAL CANCER
     Route: 042
     Dates: start: 20110905, end: 20120903
  3. OXALIPLATIN [Suspect]
     Indication: COLORECTAL CANCER
     Route: 065
     Dates: start: 20110905, end: 20120903
  4. IRINOTECAN [Suspect]
     Indication: COLORECTAL CANCER
     Route: 065
     Dates: start: 20121001, end: 20121029

REACTIONS (1)
  - Disease progression [Unknown]
